FAERS Safety Report 15202086 (Version 1)
Quarter: 2018Q3

REPORT INFORMATION
  Report Type: Spontaneous
  Country: US (occurrence: US)
  Receive Date: 20180726
  Receipt Date: 20180726
  Transmission Date: 20181010
  Serious: Yes (Other)
  Sender: FDA-Public Use
  Company Number: US-PFIZER INC-2018295447

PATIENT
  Age: 16 Month
  Sex: Female

DRUGS (2)
  1. SODIUM BICARBONATE. [Suspect]
     Active Substance: SODIUM BICARBONATE
     Dosage: 15.12 G, UNK
     Route: 048
  2. OMEPRAZOLE. [Suspect]
     Active Substance: OMEPRAZOLE
     Dosage: 2 MG/ML, UNK (ESTIMATED TOTAL DOSE OF 140 MG, 18 OMEPRAZOLE CAPSULES)
     Route: 048

REACTIONS (7)
  - Accidental exposure to product [Unknown]
  - Aspiration [Recovering/Resolving]
  - Hypokalaemia [Recovering/Resolving]
  - Accidental overdose [Unknown]
  - Electrocardiogram QT prolonged [Recovering/Resolving]
  - Metabolic alkalosis [Recovering/Resolving]
  - Hypernatraemia [Recovering/Resolving]
